FAERS Safety Report 9591321 (Version 1)
Quarter: 2013Q4

REPORT INFORMATION
  Report Type: Spontaneous
  Country: US (occurrence: US)
  Receive Date: 20131003
  Receipt Date: 20131003
  Transmission Date: 20140711
  Serious: No
  Sender: FDA-Public Use
  Company Number: US-AMGEN-USASP2012080685

PATIENT
  Age: 63 Year
  Sex: Male

DRUGS (2)
  1. ENBREL [Suspect]
     Indication: RHEUMATOID ARTHRITIS
     Dosage: UNK
     Dates: start: 20110611, end: 201206
  2. HUMIRA [Concomitant]
     Dosage: UNK

REACTIONS (2)
  - Cyst [Recovered/Resolved]
  - Rheumatoid arthritis [Recovered/Resolved]
